FAERS Safety Report 6585818-1 (Version None)
Quarter: 2010Q1

REPORT INFORMATION
  Report Type: 
  Country: None (occurrence: None)
  Receive Date: 20100217
  Receipt Date: 20100125
  Transmission Date: 20100710
  Serious: Yes (Hospitalization)
  Sender: FDA-Public Use
  Company Number: US-ROCHE-684281

PATIENT
  Sex: Male

DRUGS (9)
  1. CAPECITABINE [Suspect]
     Indication: METASTATIC GASTRIC CANCER
     Route: 048
     Dates: start: 20090619, end: 20091112
  2. CETUXIMAB [Suspect]
     Indication: METASTATIC GASTRIC CANCER
     Route: 042
     Dates: start: 20090619, end: 20091129
  3. OXALIPLATIN [Suspect]
     Indication: METASTATIC GASTRIC CANCER
     Route: 065
     Dates: start: 20090619, end: 20091112
  4. REGLAN [Concomitant]
  5. LOPERAMIDE [Concomitant]
  6. ZOFRAN [Concomitant]
  7. COMPAZINE [Concomitant]
     Dosage: DRUG NAM EREPORTED AS COMPRAZINE
  8. ENALAPRIL MALEATE [Concomitant]
  9. NORVASC [Concomitant]

REACTIONS (3)
  - DIZZINESS [None]
  - HEADACHE [None]
  - VISION BLURRED [None]
